FAERS Safety Report 5720964-3 (Version None)
Quarter: 2008Q2

REPORT INFORMATION
  Report Type: 
  Country: None (occurrence: None)
  Receive Date: 20080425
  Receipt Date: 20080425
  Transmission Date: 20081010
  Serious: Yes (Hospitalization)
  Sender: FDA-Public Use
  Company Number: None

PATIENT
  Age: 71 Year
  Sex: Male

DRUGS (2)
  1. RISPERDAL [Suspect]
     Indication: DEMENTIA ALZHEIMER'S TYPE
     Dosage: PO
     Route: 048
  2. NAMENDA [Suspect]
     Dosage: PO
     Route: 048

REACTIONS (2)
  - MYOCARDITIS [None]
  - TROPONIN INCREASED [None]
